FAERS Safety Report 9170131 (Version 1)
Quarter: 2013Q1

REPORT INFORMATION
  Report Type: Spontaneous
  Country: US (occurrence: US)
  Receive Date: 20130319
  Receipt Date: 20130319
  Transmission Date: 20140127
  Serious: No
  Sender: FDA-Public Use
  Company Number: US-009507513-1303USA008560

PATIENT
  Sex: Male

DRUGS (3)
  1. VICTRELIS [Suspect]
     Dosage: FOUR, 200 MG CAPSULES, 3 TIMES A DAY
     Route: 048
     Dates: start: 2013
  2. RIBASPHERE [Suspect]
  3. PEGASYS [Suspect]

REACTIONS (6)
  - Stress at work [Unknown]
  - Mood swings [Unknown]
  - Muscle spasms [Unknown]
  - Anorectal discomfort [Unknown]
  - Nausea [Unknown]
  - Vomiting [Unknown]
